FAERS Safety Report 11046343 (Version 3)
Quarter: 2015Q4

REPORT INFORMATION
  Report Type: Spontaneous
  Country: US (occurrence: US)
  Receive Date: 20150419
  Receipt Date: 20151019
  Transmission Date: 20160304
  Serious: No
  Sender: FDA-Public Use
  Company Number: US-009507513-1504USA015664

PATIENT
  Sex: Male

DRUGS (1)
  1. PROPECIA [Suspect]
     Active Substance: FINASTERIDE
     Indication: ANDROGENETIC ALOPECIA
     Dosage: 1 MG, UNKNOWN
     Route: 048
     Dates: start: 1997, end: 2012

REACTIONS (6)
  - Erectile dysfunction [Unknown]
  - Anxiety [Unknown]
  - Sexual dysfunction [Unknown]
  - Depression [Unknown]
  - Breast enlargement [Unknown]
  - Emotional distress [Unknown]

NARRATIVE: CASE EVENT DATE: 2002
